FAERS Safety Report 23214157 (Version 3)
Quarter: 2024Q4

REPORT INFORMATION
  Report Type: Spontaneous
  Country: US (occurrence: US)
  Receive Date: 20231121
  Receipt Date: 20241018
  Transmission Date: 20250114
  Serious: No
  Sender: PFIZER
  Company Number: US-PFIZER INC-PV202300172386

PATIENT
  Age: 73 Year
  Sex: Female

DRUGS (2)
  1. BRAFTOVI [Suspect]
     Active Substance: ENCORAFENIB
     Dosage: 375 MG, DAILY (5 DAILY TAKE WITH OR WITHOUT FOOD. AVOID GRAPEFRUIT)
  2. BRAFTOVI [Suspect]
     Active Substance: ENCORAFENIB
     Dosage: 225 MG, 1X/DAY (THREE 75 MG CAPS ONCE DAILY)
     Route: 048

REACTIONS (2)
  - Vision blurred [Unknown]
  - Off label use [Unknown]
